FAERS Safety Report 8247744-1 (Version None)
Quarter: 2012Q1

REPORT INFORMATION
  Report Type: 
  Country: None (occurrence: None)
  Receive Date: 20120330
  Receipt Date: 20120327
  Transmission Date: 20120608
  Serious: Yes (Other)
  Sender: FDA-Public Use
  Company Number: US-GLAXOSMITHKLINE-B0706217A

PATIENT
  Sex: Male
  Weight: 104.1 kg

DRUGS (10)
  1. INSULIN [Concomitant]
  2. AVANDIA [Suspect]
     Indication: DIABETES MELLITUS
     Dosage: 2MG PER DAY
     Route: 048
     Dates: start: 19990501
  3. VASERETIC [Concomitant]
  4. NORVASC [Concomitant]
  5. ATENOLOL [Concomitant]
  6. DIOVAN [Concomitant]
  7. GLYNASE [Concomitant]
  8. RELAFEN [Concomitant]
  9. SIMVASTATIN [Concomitant]
  10. AVANDAMET [Suspect]
     Indication: DIABETES MELLITUS
     Route: 048
     Dates: end: 20100302

REACTIONS (2)
  - CARDIOVASCULAR DISORDER [None]
  - ATRIOVENTRICULAR BLOCK [None]
